FAERS Safety Report 4594576-1 (Version None)
Quarter: 2005Q1

REPORT INFORMATION
  Report Type: 
  Country: None (occurrence: None)
  Receive Date: 20050301
  Receipt Date: 20040602
  Transmission Date: 20050727
  Serious: No
  Sender: FDA-Public Use
  Company Number: A513185

PATIENT
  Age: 51 Year
  Sex: Male

DRUGS (2)
  1. VALACYCLOVIR HCL [Suspect]
     Dosage: 1G TWICE PER DAY
     Route: 048
     Dates: start: 20040501
  2. IBUPROFEN WITH CODEINE [Concomitant]

REACTIONS (1)
  - DRUG INEFFECTIVE [None]
